FAERS Safety Report 6600874-X (Version None)
Quarter: 2010Q1

REPORT INFORMATION
  Report Type: 
  Country: None (occurrence: None)
  Receive Date: 20100225
  Receipt Date: 20100106
  Transmission Date: 20100710
  Serious: No
  Sender: FDA-Public Use
  Company Number: A0835645A

PATIENT
  Age: 30 Year
  Sex: Female

DRUGS (4)
  1. LAMICTAL CD [Suspect]
     Indication: POST-TRAUMATIC STRESS DISORDER
     Dosage: 25MG PER DAY
     Route: 048
     Dates: start: 20091119
  2. XANAX [Concomitant]
  3. VICODIN [Concomitant]
  4. SKELAXIN [Concomitant]

REACTIONS (7)
  - INSOMNIA [None]
  - LYMPHADENOPATHY [None]
  - MEDICATION ERROR [None]
  - MUSCLE SPASMS [None]
  - MUSCLE TWITCHING [None]
  - RASH [None]
  - SOMNOLENCE [None]
